FAERS Safety Report 23539755 (Version 2)
Quarter: 2024Q1

REPORT INFORMATION
  Report Type: Report from Study
  Country: BR (occurrence: BR)
  Receive Date: 20240219
  Receipt Date: 20240329
  Transmission Date: 20240410
  Serious: Yes (Death, Life-Threatening, Hospitalization)
  Sender: FDA-Public Use
  Company Number: BR-AstraZeneca-2022A247037

PATIENT
  Age: 0 Year
  Sex: Female
  Weight: 6.7 kg

DRUGS (9)
  1. SYNAGIS [Suspect]
     Active Substance: PALIVIZUMAB
     Indication: Respiratory syncytial virus infection
     Route: 030
  2. SYNAGIS [Suspect]
     Active Substance: PALIVIZUMAB
     Route: 030
     Dates: start: 20230428
  3. SYNAGIS [Suspect]
     Active Substance: PALIVIZUMAB
     Route: 030
     Dates: start: 20230621
  4. SYNAGIS [Suspect]
     Active Substance: PALIVIZUMAB
     Route: 030
     Dates: start: 20230727
  5. SYNAGIS [Suspect]
     Active Substance: PALIVIZUMAB
     Route: 030
     Dates: start: 20230324
  6. SPIRONOLACTONE [Concomitant]
     Active Substance: SPIRONOLACTONE
     Indication: Fluid retention
     Route: 048
  7. CAPTOPRIL [Concomitant]
     Active Substance: CAPTOPRIL
     Indication: Chest discomfort
     Route: 048
     Dates: start: 202204
  8. CAPTOPRIL [Concomitant]
     Active Substance: CAPTOPRIL
     Indication: Myocardial injury
  9. FUROSEMIDE [Concomitant]
     Active Substance: FUROSEMIDE
     Indication: Fluid retention
     Route: 048

REACTIONS (5)
  - Pneumonia [Unknown]
  - Influenza [Unknown]
  - Viral infection [Unknown]
  - Medication error [Unknown]
  - Liver disorder [Fatal]

NARRATIVE: CASE EVENT DATE: 20220101
